FAERS Safety Report 6599666-X (Version None)
Quarter: 2010Q1

REPORT INFORMATION
  Report Type: 
  Country: None (occurrence: None)
  Receive Date: 20100224
  Receipt Date: 20100218
  Transmission Date: 20100710
  Serious: Yes (Death)
  Sender: FDA-Public Use
  Company Number: GB-ELI_LILLY_AND_COMPANY-GB201002004957

PATIENT
  Age: 68 Year
  Sex: Male

DRUGS (2)
  1. ALIMTA [Suspect]
     Dosage: UNK, UNKNOWN
     Route: 065
     Dates: start: 20100118
  2. DEXAMETHASONE [Concomitant]
     Dosage: UNK, UNKNOWN
     Route: 065

REACTIONS (2)
  - DEATH [None]
  - MOUTH HAEMORRHAGE [None]
